FAERS Safety Report 9184845 (Version 2)
Quarter: 2013Q2

REPORT INFORMATION
  Report Type: Report from Study
  Country: UG (occurrence: UG)
  Receive Date: 20130325
  Receipt Date: 20130524
  Transmission Date: 20140414
  Serious: Yes (Death, Hospitalization, Other)
  Sender: FDA-Public Use
  Company Number: UG-ABBOTT-13P-165-1065743-00

PATIENT
  Age: 22 Year
  Sex: Female

DRUGS (2)
  1. KALETRA [Suspect]
     Indication: HIV INFECTION
     Route: 048
     Dates: start: 20110316, end: 20121201
  2. COTRIMOXAZOLE [Concomitant]
     Indication: PRODUCT USED FOR UNKNOWN INDICATION
     Dates: start: 20090904, end: 20121201

REACTIONS (6)
  - Pyrexia [Fatal]
  - Headache [Fatal]
  - Headache [Unknown]
  - Dysuria [Unknown]
  - Abdominal pain upper [Unknown]
  - Dyspepsia [Unknown]
